FAERS Safety Report 18098252 (Version 2)
Quarter: 2020Q3

REPORT INFORMATION
  Report Type: Spontaneous
  Country: US (occurrence: US)
  Receive Date: 20200731
  Receipt Date: 20200909
  Transmission Date: 20201103
  Serious: No
  Sender: FDA-Public Use
  Company Number: US-ASTRAZENECA-2020SE85680

PATIENT
  Sex: Female
  Weight: 98.4 kg

DRUGS (1)
  1. BYDUREON BCISE [Suspect]
     Active Substance: EXENATIDE
     Indication: TYPE 2 DIABETES MELLITUS
     Dosage: UNKNOWN DOSE ONCE WEEKLY
     Route: 065

REACTIONS (3)
  - Intentional device misuse [Unknown]
  - Injection site haemorrhage [Unknown]
  - Device leakage [Unknown]
